FAERS Safety Report 10673146 (Version 3)
Quarter: 2015Q1

REPORT INFORMATION
  Report Type: Spontaneous
  Country: GB (occurrence: GB)
  Receive Date: 20141224
  Receipt Date: 20150119
  Transmission Date: 20150720
  Serious: Yes (Other)
  Sender: FDA-Public Use
  Company Number: GB-AMGEN-GBRSP2014090000

PATIENT
  Age: 62 Year
  Sex: Female

DRUGS (8)
  1. LEFLUNOMIDE. [Concomitant]
     Active Substance: LEFLUNOMIDE
     Indication: MALAISE
     Dosage: 40 MG, UNK
  2. ENBREL [Suspect]
     Active Substance: ETANERCEPT
     Indication: RHEUMATOID ARTHRITIS
     Dosage: 50 MG, QWK
     Route: 065
     Dates: start: 20141030
  3. PREDNISOLONE. [Concomitant]
     Active Substance: PREDNISOLONE
     Dosage: 10 MG, UNK
  4. CALCICHEW-D3 [Concomitant]
     Active Substance: CALCIUM\CHOLECALCIFEROL
     Dosage: 100 MG, UNK
  5. LANSOPRAZOLE. [Concomitant]
     Active Substance: LANSOPRAZOLE
     Dosage: 30 MG, UNK
  6. ALENDRONIC ACID [Concomitant]
     Active Substance: ALENDRONIC ACID
     Dosage: 100 MG, UNK
  7. CYCLIZINE [Concomitant]
     Active Substance: CYCLIZINE
     Indication: MALAISE
     Dosage: 50 MG, AS NEEDED
  8. CHLORPROMAZINE [Concomitant]
     Active Substance: CHLORPROMAZINE
     Dosage: 25 MG, UNK

REACTIONS (7)
  - Asthenia [Not Recovered/Not Resolved]
  - Rheumatoid arthritis [Recovered/Resolved]
  - Pain in extremity [Recovered/Resolved]
  - Decreased appetite [Not Recovered/Not Resolved]
  - Food craving [Not Recovered/Not Resolved]
  - Peripheral swelling [Recovered/Resolved]
  - Nausea [Not Recovered/Not Resolved]
